FAERS Safety Report 9140995 (Version 1)
Quarter: 2013Q1

REPORT INFORMATION
  Report Type: Spontaneous
  Country: CH (occurrence: CH)
  Receive Date: 20130305
  Receipt Date: 20130305
  Transmission Date: 20140127
  Serious: Yes (Hospitalization)
  Sender: FDA-Public Use
  Company Number: CH-GILEAD-2013-0070922

PATIENT
  Age: 32 Year
  Sex: Female

DRUGS (3)
  1. VIREAD [Suspect]
     Indication: HIV INFECTION
  2. ABACAVIR [Concomitant]
     Indication: HIV INFECTION
  3. LOPINAVIR W/RITONAVIR [Concomitant]
     Indication: HIV INFECTION

REACTIONS (3)
  - Retroviral rebound syndrome [Recovered/Resolved]
  - Encephalitis [Recovered/Resolved]
  - Intracranial pressure increased [Recovered/Resolved]
